FAERS Safety Report 10226485 (Version 2)
Quarter: 2014Q2

REPORT INFORMATION
  Report Type: Spontaneous
  Country: US (occurrence: US)
  Receive Date: 20140609
  Receipt Date: 20140609
  Transmission Date: 20141212
  Serious: No
  Sender: FDA-Public Use
  Company Number: US-AMGEN INC.-KDL383186

PATIENT
  Age: 92 Year
  Sex: Female
  Weight: 61.29 kg

DRUGS (7)
  1. PROCRIT [Suspect]
     Indication: ANAEMIA
     Dosage: 40000 IU, 2 TIMES/WK
     Route: 058
     Dates: start: 2006
  2. TOPROL XL [Concomitant]
     Dosage: UNK
  3. TOLTERODINE TARTRATE [Concomitant]
     Dosage: UNK
  4. VICTAN [Concomitant]
     Dosage: UNK
  5. HYDROCODONE BITARTRATE + ACETAMINOPHEN [Concomitant]
     Dosage: UNK UNK, PRN AS NECESSARY
  6. IRON [Concomitant]
     Dosage: UNK
  7. UNSPECIFIED PAIN MEDICATION [Concomitant]
     Dosage: UNK UNK, PRN AS NECESSARY

REACTIONS (3)
  - Blister [Not Recovered/Not Resolved]
  - Erythema [Unknown]
  - Rash [Recovered/Resolved]
